FAERS Safety Report 16145157 (Version 1)
Quarter: 2019Q2

REPORT INFORMATION
  Report Type: Spontaneous
  Country: US (occurrence: US)
  Receive Date: 20190402
  Receipt Date: 20190402
  Transmission Date: 20190711
  Serious: Yes (Other)
  Sender: FDA-Public Use
  Company Number: US-LUPIN PHARMACEUTICALS INC.-2019-01837

PATIENT
  Age: 49 Year
  Sex: Female

DRUGS (4)
  1. DULOXETINE. [Suspect]
     Active Substance: DULOXETINE
     Indication: PAIN MANAGEMENT
     Dosage: UNK
     Route: 065
  2. GABAPENTIN. [Suspect]
     Active Substance: GABAPENTIN
     Indication: PAIN MANAGEMENT
     Dosage: 100 MILLIGRAM, BID
     Route: 048
  3. PREGABALIN. [Suspect]
     Active Substance: PREGABALIN
     Indication: PAIN MANAGEMENT
     Dosage: UNK
     Route: 065
  4. PARACETAMOL [Suspect]
     Active Substance: ACETAMINOPHEN
     Indication: PAIN MANAGEMENT
     Dosage: UNK
     Route: 065

REACTIONS (4)
  - Somnolence [Unknown]
  - Drug intolerance [Unknown]
  - Tardive dyskinesia [Unknown]
  - Treatment failure [Unknown]
